FAERS Safety Report 6040487-4 (Version None)
Quarter: 2009Q1

REPORT INFORMATION
  Report Type: 
  Country: None (occurrence: None)
  Receive Date: 20090116
  Receipt Date: 20080319
  Transmission Date: 20090719
  Serious: No
  Sender: FDA-Public Use
  Company Number: US-BRISTOL-MYERS SQUIBB COMPANY-14120695

PATIENT
  Age: 69 Year
  Sex: Female
  Weight: 109 kg

DRUGS (7)
  1. ABILIFY [Suspect]
     Indication: DEPRESSION
  2. DIOVAN [Concomitant]
  3. PLAVIX [Concomitant]
  4. LASIX [Concomitant]
  5. POTASSIUM CHLORIDE [Concomitant]
  6. PAXIL [Concomitant]
  7. ATIVAN [Concomitant]

REACTIONS (2)
  - MUSCULOSKELETAL STIFFNESS [None]
  - PAIN [None]
